FAERS Safety Report 13273300 (Version 1)
Quarter: 2017Q1

REPORT INFORMATION
  Report Type: Spontaneous
  Country: MX (occurrence: MX)
  Receive Date: 20170227
  Receipt Date: 20170227
  Transmission Date: 20170428
  Serious: Yes (Death, Hospitalization, Other)
  Sender: FDA-Public Use
  Company Number: MX-CELGENEUS-MEX-2017025710

PATIENT
  Age: 76 Year
  Sex: Male

DRUGS (2)
  1. VIDAZA [Suspect]
     Active Substance: AZACITIDINE
     Indication: ACUTE MYELOID LEUKAEMIA
     Dosage: 100 MILLIGRAM
     Route: 041
     Dates: start: 20160801, end: 20161006
  2. VIDAZA [Suspect]
     Active Substance: AZACITIDINE
     Indication: OFF LABEL USE
     Dosage: 100 MILLIGRAM
     Route: 041
     Dates: start: 20160808, end: 20160929

REACTIONS (4)
  - Cardio-respiratory arrest [Unknown]
  - Pneumonia [Fatal]
  - Therapy non-responder [Unknown]
  - Disease progression [Unknown]

NARRATIVE: CASE EVENT DATE: 2016
